FAERS Safety Report 4437856-2 (Version None)
Quarter: 2004Q3

REPORT INFORMATION
  Report Type: 
  Country: None (occurrence: None)
  Receive Date: 20040831
  Receipt Date: 20040817
  Transmission Date: 20050211
  Serious: Yes (Disabling)
  Sender: FDA-Public Use
  Company Number: DEWYE931427JUL04

PATIENT
  Sex: Female
  Weight: 95 kg

DRUGS (4)
  1. ENBREL [Suspect]
     Indication: RHEUMATOID ARTHRITIS
     Route: 058
     Dates: start: 20040601
  2. ZITHROMAX [Suspect]
     Route: 048
     Dates: start: 20040615, end: 20040617
  3. METHOTREXATE [Concomitant]
     Route: 030
     Dates: start: 19901001
  4. IBUPROFEN [Concomitant]
     Dates: start: 19831001

REACTIONS (3)
  - ANOSMIA [None]
  - INFECTION [None]
  - NASOPHARYNGITIS [None]
